FAERS Safety Report 5007284-X (Version None)
Quarter: 2006Q2

REPORT INFORMATION
  Report Type: 
  Country: None (occurrence: None)
  Receive Date: 20060519
  Receipt Date: 20060519
  Transmission Date: 20061013
  Serious: Yes (Other)
  Sender: FDA-Public Use
  Company Number: None

PATIENT
  Sex: Male

DRUGS (1)
  1. RAPTIVA [Suspect]
     Indication: PSORIASIS
     Dates: start: 20060422, end: 20060501

REACTIONS (6)
  - CHEST PAIN [None]
  - DIARRHOEA [None]
  - HAEMATEMESIS [None]
  - HEADACHE [None]
  - INFLUENZA LIKE ILLNESS [None]
  - MIGRAINE [None]
